FAERS Safety Report 8547959-9 (Version None)
Quarter: 2012Q3

REPORT INFORMATION
  Report Type: 
  Country: None (occurrence: None)
  Receive Date: 20120729
  Receipt Date: 20120717
  Transmission Date: 20120928
  Serious: Yes (Hospitalization, Other)
  Sender: FDA-Public Use
  Company Number: NL-TEVA-349483ISR

PATIENT
  Sex: Female

DRUGS (4)
  1. SIMVASTATIN [Concomitant]
  2. COPAXONE [Suspect]
     Indication: MULTIPLE SCLEROSIS
     Dosage: 20 MILLIGRAM;
     Route: 058
     Dates: start: 20051124
  3. DROSPIRENONE AND ESTRADIOL [Concomitant]
     Indication: MENOPAUSE
  4. AMITRIPTYLINE HYDROCHLORIDE [Concomitant]

REACTIONS (2)
  - FALL [None]
  - HIP FRACTURE [None]
